FAERS Safety Report 19200387 (Version 1)
Quarter: 2021Q2

REPORT INFORMATION
  Report Type: Spontaneous
  Country: US (occurrence: US)
  Receive Date: 20210430
  Receipt Date: 20210430
  Transmission Date: 20210717
  Serious: Yes (Hospitalization)
  Sender: FDA-Public Use
  Company Number: None

PATIENT
  Sex: Female

DRUGS (4)
  1. CAPECITABINE 500MG TAB [Suspect]
     Active Substance: CAPECITABINE
     Indication: BREAST CANCER FEMALE
     Dosage: ROUTE: PO ? 14 DAYS ? Q21 DAYS
     Route: 048
     Dates: start: 20210317
  2. SPIRONOLACT [Concomitant]
     Active Substance: SPIRONOLACTONE
  3. CAPECITABINE 150MG TAB [Suspect]
     Active Substance: CAPECITABINE
     Indication: BREAST CANCER FEMALE
     Dosage: ROUTE: PO ? 14 DAYS ? Q21 DAYS
     Route: 048
     Dates: start: 20210317
  4. PROMETHAZINE [Concomitant]
     Active Substance: PROMETHAZINE HYDROCHLORIDE

REACTIONS (2)
  - Therapy interrupted [None]
  - Constipation [None]
